FAERS Safety Report 7388021-0 (Version None)
Quarter: 2011Q1

REPORT INFORMATION
  Report Type: 
  Country: None (occurrence: None)
  Receive Date: 20110322
  Receipt Date: 20110308
  Transmission Date: 20110831
  Serious: Yes (Other)
  Sender: FDA-Public Use
  Company Number: CIP11000626

PATIENT
  Age: 78 Year
  Sex: Female

DRUGS (3)
  1. RALOXIFENE HCL [Suspect]
     Indication: OSTEOPOROSIS POSTMENOPAUSAL
     Dosage: 60 MG DAILY, ORAL
     Route: 048
     Dates: start: 20081001, end: 20090401
  2. ALENDRONATE SODIUM [Suspect]
     Indication: OSTEOPOROSIS POSTMENOPAUSAL
     Dosage: 5MG DAILY, ORAL
     Route: 048
     Dates: start: 20041101, end: 20041101
  3. RISDERONATE (RISEDRONATE SODUIM) TABLET, 2.5MG [Suspect]
     Indication: OSTEOPOROSIS POSTMENOPAUSAL
     Dosage: 2.5MG DAILY, ORAL
     Route: 048
     Dates: start: 20021101, end: 20041101

REACTIONS (5)
  - PATHOLOGICAL FRACTURE [None]
  - FEMUR FRACTURE [None]
  - BALANCE DISORDER [None]
  - BLOOD ACID PHOSPHATASE DECREASED [None]
  - LOW TURNOVER OSTEOPATHY [None]
